FAERS Safety Report 4876913-3 (Version None)
Quarter: 2006Q1

REPORT INFORMATION
  Report Type: 
  Country: None (occurrence: None)
  Receive Date: 20060110
  Receipt Date: 20060106
  Transmission Date: 20060701
  Serious: Yes (Hospitalization)
  Sender: FDA-Public Use
  Company Number: FR-SANOFI-SYNTHELABO-F01200600038

PATIENT
  Sex: Male
  Weight: 61 kg

DRUGS (3)
  1. FLUOROURACIL [Suspect]
     Indication: OESOPHAGEAL CARCINOMA
     Route: 042
     Dates: start: 20051117, end: 20051120
  2. CISPLATIN [Suspect]
     Route: 042
     Dates: start: 20051117, end: 20051117
  3. RADIOTHERAPY [Concomitant]
     Indication: OESOPHAGEAL CARCINOMA
     Dosage: TOTAL DOSE OF FRACTION ADMINISTERED BEFORE SAE:
     Route: 050
     Dates: start: 20051117, end: 20051222

REACTIONS (3)
  - CANDIDIASIS [None]
  - NEUTROPENIA [None]
  - SEPTIC SHOCK [None]
